FAERS Safety Report 17800137 (Version 2)
Quarter: 2020Q4

REPORT INFORMATION
  Report Type: Report from Study
  Country: None (occurrence: IL)
  Receive Date: 20200519
  Receipt Date: 20201006
  Transmission Date: 20210113
  Serious: Yes (Other)
  Sender: FDA-Public Use
  Company Number: IL-ABBVIE-20K-082-3343146-00

PATIENT
  Age: 58 Year
  Sex: Female

DRUGS (1)
  1. HUMIRA [Suspect]
     Active Substance: ADALIMUMAB
     Indication: ANKYLOSING SPONDYLITIS
     Route: 058
     Dates: start: 20200308

REACTIONS (9)
  - Musculoskeletal pain [Not Recovered/Not Resolved]
  - Injection site induration [Recovered/Resolved]
  - Burning sensation [Not Recovered/Not Resolved]
  - Injection site vesicles [Recovered/Resolved]
  - Injection site hypersensitivity [Recovered/Resolved]
  - Injection site pruritus [Recovered/Resolved]
  - Hypoaesthesia [Not Recovered/Not Resolved]
  - Injection site swelling [Recovered/Resolved]
  - Injection site erythema [Recovered/Resolved]

NARRATIVE: CASE EVENT DATE: 2020
